FAERS Safety Report 16619942 (Version 1)
Quarter: 2019Q3

REPORT INFORMATION
  Report Type: Spontaneous
  Country: US (occurrence: US)
  Receive Date: 20190723
  Receipt Date: 20190723
  Transmission Date: 20191004
  Serious: No
  Sender: FDA-Public Use
  Company Number: US-IGSA-SR10007009

PATIENT
  Age: 15 Year
  Sex: Female

DRUGS (2)
  1. GAMUNEX-C [Suspect]
     Active Substance: HUMAN IMMUNOGLOBULIN G
     Indication: CHRONIC INFLAMMATORY DEMYELINATING POLYRADICULONEUROPATHY
     Dosage: UNK
     Route: 042
     Dates: start: 20180915
  2. GAMUNEX-C [Suspect]
     Active Substance: HUMAN IMMUNOGLOBULIN G
     Dosage: UNK
     Route: 042
     Dates: start: 201603

REACTIONS (4)
  - Migraine [Recovering/Resolving]
  - Meningitis aseptic [Recovering/Resolving]
  - Neck pain [Recovering/Resolving]
  - Nausea [Recovering/Resolving]

NARRATIVE: CASE EVENT DATE: 20180915
